FAERS Safety Report 15762031 (Version 1)
Quarter: 2018Q4

REPORT INFORMATION
  Report Type: Spontaneous
  Country: GB (occurrence: GB)
  Receive Date: 20181226
  Receipt Date: 20181226
  Transmission Date: 20190205
  Serious: Yes (Other)
  Sender: FDA-Public Use
  Company Number: GB-MYLANLABS-2018M1094769

PATIENT
  Age: 31 Year
  Sex: Male
  Weight: 104 kg

DRUGS (4)
  1. REVAXIS [Concomitant]
     Active Substance: DIPHTHERIA AND TETANUS TOXOIDS AND POLIOVIRUS VACCINE ANTIGENS
     Dosage: UNK
     Dates: start: 20180530, end: 20180530
  2. ZOLMITRIPTAN. [Suspect]
     Active Substance: ZOLMITRIPTAN
     Indication: PRODUCT USED FOR UNKNOWN INDICATION
     Dosage: UNK
     Dates: start: 20180612
  3. AVAXIM [Concomitant]
     Dosage: UNK
     Dates: start: 20180525, end: 20180525
  4. TYPHIM VI [Concomitant]
     Active Substance: SALMONELLA TYPHI TY2 VI POLYSACCHARIDE ANTIGEN
     Dosage: UNK
     Dates: start: 20180525, end: 20180525

REACTIONS (2)
  - Skin burning sensation [Recovered/Resolved]
  - Dysphagia [Recovered/Resolved]

NARRATIVE: CASE EVENT DATE: 20180612
